FAERS Safety Report 20879541 (Version 8)
Quarter: 2023Q2

REPORT INFORMATION
  Report Type: Spontaneous
  Country: CA (occurrence: CA)
  Receive Date: 20220526
  Receipt Date: 20230425
  Transmission Date: 20230721
  Serious: Yes (Hospitalization, Other)
  Sender: FDA-Public Use
  Company Number: CA-PFIZER INC-2021605880

PATIENT
  Age: 44 Year
  Sex: Female
  Weight: 115 kg

DRUGS (12)
  1. IBRANCE [Suspect]
     Active Substance: PALBOCICLIB
     Dosage: 125 MG ONCE DAILY FOR 21 CONSECUTIVE DAYS OF A 28 DAYS CYCLE
     Route: 048
     Dates: start: 20210602
  2. IBRANCE [Suspect]
     Active Substance: PALBOCICLIB
     Dosage: 125 MG, OD FOR 21 DAYS THEN 7 DAYS OFF
     Route: 048
     Dates: start: 20211126
  3. IBRANCE [Suspect]
     Active Substance: PALBOCICLIB
     Dosage: 125 MG, OD FOR 21 DAYS THEN 7 DAYS OFF
     Route: 048
     Dates: start: 20220214
  4. IBRANCE [Suspect]
     Active Substance: PALBOCICLIB
     Dosage: 75 MG, CYCLIC (75 MG BY MOUTH 1 TIME EACH DAY FOR 21 DAYS, THEN 7 DAYS OFF)
     Route: 048
  5. DESVENLAFAXINE [Concomitant]
     Active Substance: DESVENLAFAXINE
     Dosage: 50 MG, 1X/DAY, EXTENDED RELEASE 24H ONE A DAY
     Route: 048
  6. LETROZOLE [Concomitant]
     Active Substance: LETROZOLE
     Dosage: UNK
  7. LETROZOLE [Concomitant]
     Active Substance: LETROZOLE
     Dosage: 2.5 MG, ORAL, DAILY
     Route: 048
  8. MORPHINE SULFATE [Concomitant]
     Active Substance: MORPHINE SULFATE
     Dosage: 30 MG, 2X/DAY
     Route: 048
  9. MORPHINE SULFATE [Concomitant]
     Active Substance: MORPHINE SULFATE
     Dosage: 20 MG, AS NEEDED (20 MG, EVERY 1 HOUR PRN)
     Route: 048
  10. MORPHINE SULFATE [Concomitant]
     Active Substance: MORPHINE SULFATE
     Dosage: 45 MG, 2X/DAY (45 MG, EVERY 12 HOURS)
     Route: 048
  11. PALBOCICLIB [Concomitant]
     Active Substance: PALBOCICLIB
     Dosage: UNK
  12. ZOLADEX [Concomitant]
     Active Substance: GOSERELIN ACETATE
     Dosage: UNK

REACTIONS (7)
  - Abdominal discomfort [Unknown]
  - Diarrhoea [Unknown]
  - Weight decreased [Not Recovered/Not Resolved]
  - Body surface area decreased [Not Recovered/Not Resolved]
  - Pain [Unknown]
  - Body surface area increased [Unknown]
  - Weight increased [Unknown]

NARRATIVE: CASE EVENT DATE: 20220214
